FAERS Safety Report 13082576 (Version 1)
Quarter: 2017Q1

REPORT INFORMATION
  Report Type: Spontaneous
  Country: BR (occurrence: BR)
  Receive Date: 20170103
  Receipt Date: 20170103
  Transmission Date: 20170428
  Serious: Yes (Hospitalization)
  Sender: FDA-Public Use
  Company Number: BR-ABBVIE-17P-020-1827010-00

PATIENT
  Sex: Male
  Weight: 89 kg

DRUGS (7)
  1. DEPAKENE [Suspect]
     Active Substance: VALPROIC ACID
     Indication: BIPOLAR DISORDER
     Dosage: DAILY DOSE OF 750 MG
     Route: 065
  2. DEPAKENE [Suspect]
     Active Substance: VALPROIC ACID
     Dosage: ONE CAPSULE PER DAY
     Route: 048
  3. METFORMIN HYDROCHLORIDE. [Concomitant]
     Active Substance: METFORMIN HYDROCHLORIDE
     Indication: DIABETES MELLITUS
     Route: 048
     Dates: start: 2006
  4. AZUKON [Concomitant]
     Active Substance: GLICLAZIDE
     Indication: DIABETES MELLITUS
     Dosage: FREQUENCY: ^1 TIME^ (SIC); MORNING
     Route: 048
  5. LOSARTAN. [Concomitant]
     Active Substance: LOSARTAN
     Indication: HYPERTENSION
     Dosage: 1 TABLET; MORNING
     Route: 048
     Dates: start: 201608
  6. GLICONIL [Concomitant]
     Indication: DIABETES MELLITUS
     Route: 048
     Dates: start: 2006
  7. HYDROCHLOROTHIAZIDE. [Concomitant]
     Active Substance: HYDROCHLOROTHIAZIDE
     Indication: BLOOD PRESSURE MEASUREMENT

REACTIONS (7)
  - Alcoholism [Unknown]
  - Drug dose omission [Unknown]
  - Product use issue [Unknown]
  - Mental disorder [Unknown]
  - Nervousness [Unknown]
  - Dyspepsia [Not Recovered/Not Resolved]
  - Insomnia [Unknown]

NARRATIVE: CASE EVENT DATE: 2011
